FAERS Safety Report 24104583 (Version 1)
Quarter: 2024Q3

REPORT INFORMATION
  Report Type: Spontaneous
  Country: US (occurrence: US)
  Receive Date: 20240717
  Receipt Date: 20240717
  Transmission Date: 20241017
  Serious: Yes (Hospitalization)
  Sender: PFIZER
  Company Number: US-MLMSERVICE-20240710-PI120627-00177-1

PATIENT
  Age: 16 Year
  Sex: Female

DRUGS (8)
  1. HYDROCORTISONE SODIUM SUCCINATE [Interacting]
     Active Substance: HYDROCORTISONE SODIUM SUCCINATE
     Indication: Steroid therapy
     Dosage: FREQ:8 H;YELLOW ZONE (15 MG, 3X/DAY)
  2. HYDROCORTISONE SODIUM SUCCINATE [Interacting]
     Active Substance: HYDROCORTISONE SODIUM SUCCINATE
     Dosage: FREQ:8 H;RED ZONE (100 MG, 3X/DAY)
     Route: 042
  3. HYDROCORTISONE SODIUM SUCCINATE [Interacting]
     Active Substance: HYDROCORTISONE SODIUM SUCCINATE
     Dosage: GREEN ZONE (5 MG, 3X/DAY)
  4. MITOTANE [Interacting]
     Active Substance: MITOTANE
     Indication: Adrenocortical carcinoma
     Dosage: UNK
  5. FLUDROCORTISONE [Interacting]
     Active Substance: FLUDROCORTISONE
     Indication: Steroid therapy
     Dosage: 0.1 MG, 1X/DAY
  6. ETOPOSIDE [Concomitant]
     Active Substance: ETOPOSIDE
     Indication: Adrenocortical carcinoma
     Dosage: UNK
  7. DOXORUBICIN [Concomitant]
     Active Substance: DOXORUBICIN
     Indication: Adrenocortical carcinoma
     Dosage: UNK
  8. CISPLATIN [Concomitant]
     Active Substance: CISPLATIN
     Indication: Adrenocortical carcinoma
     Dosage: UNK

REACTIONS (3)
  - Hypotension [Unknown]
  - Adrenocortical insufficiency acute [Unknown]
  - Drug interaction [Unknown]
